FAERS Safety Report 19552744 (Version 3)
Quarter: 2021Q4

REPORT INFORMATION
  Report Type: Spontaneous
  Country: US (occurrence: US)
  Receive Date: 20210715
  Receipt Date: 20211009
  Transmission Date: 20220304
  Serious: No
  Sender: FDA-Public Use
  Company Number: NVSC2021US158141

PATIENT
  Sex: Female

DRUGS (1)
  1. PIQRAY [Suspect]
     Active Substance: ALPELISIB
     Indication: Product used for unknown indication
     Dosage: UNK
     Route: 048

REACTIONS (4)
  - Fatigue [Unknown]
  - Taste disorder [Unknown]
  - Rash [Recovered/Resolved]
  - Diarrhoea [Recovering/Resolving]
